FAERS Safety Report 8572603-4 (Version None)
Quarter: 2012Q3

REPORT INFORMATION
  Report Type: 
  Country: None (occurrence: None)
  Receive Date: 20120806
  Receipt Date: 20120801
  Transmission Date: 20120928
  Serious: Yes (Death)
  Sender: FDA-Public Use
  Company Number: US-ASTRAZENECA-2012SE53121

PATIENT
  Sex: Male
  Weight: 10.4 kg

DRUGS (13)
  1. ALBUTEROL [Concomitant]
     Indication: COUGH
     Dosage: EVERY 4 HOURS AS NEEDED
  2. SALINE [Concomitant]
     Dosage: AS NEEDED
     Route: 045
  3. SINGULAIR [Concomitant]
  4. SYMBICORT [Concomitant]
     Dosage: 2 PUFFS 2 TIMES A DAY
  5. NYSTATIN [Concomitant]
     Indication: FUNGAL INFECTION
  6. ATROVENT [Concomitant]
  7. SYNAGIS [Suspect]
     Route: 030
     Dates: start: 19980101
  8. ZYRTEC [Concomitant]
     Indication: MULTIPLE ALLERGIES
     Dosage: DAILY
  9. ALBUTEROL [Concomitant]
     Indication: WHEEZING
     Dosage: EVERY 4 HOURS AS NEEDED
  10. ANTIBIOTICS [Concomitant]
  11. CALCIUM CARBONATE [Concomitant]
     Indication: GASTROOESOPHAGEAL REFLUX DISEASE
  12. PULMICORT [Concomitant]
     Indication: UPPER RESPIRATORY TRACT INFECTION
     Dosage: 0.25 DAILY
  13. XYLITOL [Concomitant]
     Dosage: AS NEEDED
     Route: 045

REACTIONS (2)
  - ORGAN FAILURE [None]
  - PNEUMONIA [None]
